FAERS Safety Report 7942314-4 (Version None)
Quarter: 2011Q4

REPORT INFORMATION
  Report Type: 
  Country: None (occurrence: None)
  Receive Date: 20111122
  Receipt Date: 20110718
  Transmission Date: 20120403
  Serious: Yes (Other)
  Sender: FDA-Public Use
  Company Number: PHHY2011US58730

PATIENT
  Age: 48 Year
  Sex: Female
  Weight: 76.6 kg

DRUGS (25)
  1. GILENYA [Suspect]
     Dosage: 0.5 MG, QD, ORAL
     Route: 048
  2. TRIAMCINOLONE [Concomitant]
  3. MELOXICAM (MELOXICAM) TABLET [Concomitant]
  4. VITAMIN D3 (COLECALCIFEROL) CAPSULE [Concomitant]
  5. FAMPRIDINE (FAMPRIDINE) TABLET [Concomitant]
  6. NEXIUM (ESOMEPRAZOLE MAGNESIUM) CAPSULE [Concomitant]
  7. HYDROCHLOROTHIAZIDE W/TRIAMTERENE (HYDROCHLOROTHIAZIDE, TRIAMTERENE) [Concomitant]
  8. CARISOPRODOL (CARISOPRODOL) TABLET [Concomitant]
  9. ALPRAZOLAM [Concomitant]
  10. IRON (IRON) CAPSULE [Concomitant]
  11. GABAPENTIN (GABAPENTIN) CAPSULE [Concomitant]
  12. VITAMIN C (ASCORBIC ACID) CAPSULE [Concomitant]
  13. CYCLOBENZAPRINE (CYCLOBENZAPRINE) CAPSULE [Concomitant]
  14. GLUCOSAMINE/ CHONDROITIN/ MSM (CHONDROITIN, GLUCOSAMINE, METHYLSULFONY [Concomitant]
  15. CALCIUM (CALCIUM) TABLET [Concomitant]
  16. STOOL SOFTENER (DOCUSATE SODIUM) CAPSULE [Concomitant]
  17. ALBUTEROL [Concomitant]
  18. BUPROPION HCL [Concomitant]
  19. HYDROCODONE W/APAP (HYDROCODONE, PARACETAMOL) TABLET [Concomitant]
  20. LEVOTHYROXINE (LEVOTHYROXINE) TABLET [Concomitant]
  21. ESTRADIOL [Concomitant]
  22. CYMBALTA [Concomitant]
  23. PROVIGIL [Concomitant]
  24. MULTIVITAMIN ^LAPPE^ (VITAMINS NOS) CAPSULE [Concomitant]
  25. BIOTIN (BIOTIN) CAPSULE [Concomitant]

REACTIONS (2)
  - CANDIDIASIS [None]
  - NAUSEA [None]
